FAERS Safety Report 24850281 (Version 1)
Quarter: 2025Q1

REPORT INFORMATION
  Report Type: Spontaneous
  Country: GB (occurrence: GB)
  Receive Date: 20250116
  Receipt Date: 20250116
  Transmission Date: 20250409
  Serious: Yes (Hospitalization, Disabling, Other)
  Sender: B BRAUN
  Company Number: GB-B.Braun Medical Inc.-2169192

PATIENT
  Age: 60 Year
  Sex: Female
  Weight: 97 kg

DRUGS (44)
  1. METRONIDAZOLE [Suspect]
     Active Substance: METRONIDAZOLE
     Indication: Rheumatoid arthritis
  2. BISOPROLOL FUMARATE [Suspect]
     Active Substance: BISOPROLOL FUMARATE
  3. CELECOXIB [Suspect]
     Active Substance: CELECOXIB
  4. MEPERIDINE [Suspect]
     Active Substance: MEPERIDINE
  5. LEVOFLOXACIN HEMIHYDRATE [Suspect]
     Active Substance: LEVOFLOXACIN
  6. HYDROXYCHLOROQUINE SULFATE [Suspect]
     Active Substance: HYDROXYCHLOROQUINE SULFATE
  7. ERYTHROMYCIN [Suspect]
     Active Substance: ERYTHROMYCIN
  8. CELECOXIB [Suspect]
     Active Substance: CELECOXIB
  9. CEFACLOR [Suspect]
     Active Substance: CEFACLOR
  10. PREDNISONE [Suspect]
     Active Substance: PREDNISONE
  11. LEFLUNOMIDE [Suspect]
     Active Substance: LEFLUNOMIDE
  12. DICLOFENAC SODIUM\MISOPROSTOL [Suspect]
     Active Substance: DICLOFENAC SODIUM\MISOPROSTOL
  13. MISOPROSTOL [Suspect]
     Active Substance: MISOPROSTOL
  14. FLAGYL [Suspect]
     Active Substance: METRONIDAZOLE\METRONIDAZOLE HYDROCHLORIDE
  15. ERYTHROMYCIN STEARATE [Suspect]
     Active Substance: ERYTHROMYCIN STEARATE
  16. LEVOFLOXACIN [Suspect]
     Active Substance: LEVOFLOXACIN
  17. ERYTHROMYCIN ESTOLATE [Suspect]
     Active Substance: ERYTHROMYCIN ESTOLATE
  18. MEPERIDINE HYDROCHLORIDE [Suspect]
     Active Substance: MEPERIDINE HYDROCHLORIDE
  19. DICLOFENAC SODIUM\MISOPROSTOL [Suspect]
     Active Substance: DICLOFENAC SODIUM\MISOPROSTOL
  20. NORFLOXACIN [Suspect]
     Active Substance: NORFLOXACIN
  21. LYRICA [Suspect]
     Active Substance: PREGABALIN
  22. ARAVA [Suspect]
     Active Substance: LEFLUNOMIDE
  23. ERYTHROMYCIN [Suspect]
     Active Substance: ERYTHROMYCIN
  24. CELEBREX [Suspect]
     Active Substance: CELECOXIB
  25. DEMEROL [Suspect]
     Active Substance: MEPERIDINE HYDROCHLORIDE
  26. CECLOR [Suspect]
     Active Substance: CEFACLOR
  27. PLAQUENIL [Suspect]
     Active Substance: HYDROXYCHLOROQUINE SULFATE
  28. HUMIRA [Suspect]
     Active Substance: ADALIMUMAB
  29. ARTHROTEC [Suspect]
     Active Substance: DICLOFENAC SODIUM\MISOPROSTOL
  30. SULFASALAZINE [Suspect]
     Active Substance: SULFASALAZINE
  31. MEPERIDINE HYDROCHLORIDE [Suspect]
     Active Substance: MEPERIDINE HYDROCHLORIDE
  32. PREDNISONE [Suspect]
     Active Substance: PREDNISONE
  33. PREGABALIN [Suspect]
     Active Substance: PREGABALIN
  34. PREGABALIN [Suspect]
     Active Substance: PREGABALIN
  35. HYRIMOZ [Suspect]
     Active Substance: ADALIMUMAB-ADAZ
  36. LEFLUNOMIDE [Suspect]
     Active Substance: LEFLUNOMIDE
  37. ADALIMUMAB [Suspect]
     Active Substance: ADALIMUMAB
  38. LEVOFLOXACIN HEMIHYDRATE [Suspect]
     Active Substance: LEVOFLOXACIN
  39. DICLOFENAC SODIUM [Suspect]
     Active Substance: DICLOFENAC SODIUM
  40. BISOPROLOL FUMARATE [Suspect]
     Active Substance: BISOPROLOL FUMARATE
  41. DICLOFENAC POTASSIUM [Suspect]
     Active Substance: DICLOFENAC POTASSIUM
  42. LEVOFLOXACIN [Suspect]
     Active Substance: LEVOFLOXACIN
  43. METHOTREXATE [Suspect]
     Active Substance: METHOTREXATE
  44. LEFLUNOMIDE [Suspect]
     Active Substance: LEFLUNOMIDE

REACTIONS (20)
  - Platelet count increased [Unknown]
  - Drug ineffective for unapproved indication [Unknown]
  - Dizziness [Unknown]
  - Secretion discharge [Unknown]
  - Red blood cell sedimentation rate increased [Unknown]
  - Pain in extremity [Unknown]
  - Malaise [Unknown]
  - Iron deficiency [Unknown]
  - Hypoaesthesia [Unknown]
  - Therapeutic product effect incomplete [Unknown]
  - Vomiting [Unknown]
  - Nausea [Unknown]
  - Fatigue [Unknown]
  - Drug hypersensitivity [Unknown]
  - Bloody discharge [Unknown]
  - Lyme disease [Unknown]
  - Drug intolerance [Unknown]
  - International normalised ratio fluctuation [Unknown]
  - Infection [Unknown]
  - Staphylococcal infection [Unknown]
